FAERS Safety Report 6457328-3 (Version None)
Quarter: 2009Q4

REPORT INFORMATION
  Report Type: 
  Country: None (occurrence: None)
  Receive Date: 20091119
  Receipt Date: 20091103
  Transmission Date: 20100525
  Serious: Yes (Other)
  Sender: FDA-Public Use
  Company Number: 2009SA000912

PATIENT
  Age: 55 Year
  Sex: Female

DRUGS (8)
  1. MULTAQ [Suspect]
     Indication: ATRIAL FIBRILLATION
     Dosage: 400 MILLIGRAM(S); EVERY 12 HOURS; ORAL
     Route: 048
     Dates: start: 20091026
  2. CALCIUM WITH VITAMIN D [Concomitant]
  3. VITAMIN B COMPLEX CAP [Concomitant]
  4. ASCORBIC ACID [Concomitant]
  5. VITAMIN E [Concomitant]
  6. ACYCLOVIR [Concomitant]
  7. SUMATRIPTAN [Concomitant]
  8. SOTALOL HCL [Concomitant]

REACTIONS (3)
  - ATRIAL FIBRILLATION [None]
  - MIDDLE INSOMNIA [None]
  - PALPITATIONS [None]
